FAERS Safety Report 19083207 (Version 2)
Quarter: 2021Q2

REPORT INFORMATION
  Report Type: Spontaneous
  Country: FR (occurrence: FR)
  Receive Date: 20210401
  Receipt Date: 20210408
  Transmission Date: 20210717
  Serious: Yes (Death, Hospitalization)
  Sender: FDA-Public Use
  Company Number: FR-PFIZER INC-2021333293

PATIENT
  Age: 58 Year
  Sex: Female
  Weight: 74 kg

DRUGS (11)
  1. ERYTHROMYCINE [ERYTHROMYCIN] [Suspect]
     Active Substance: ERYTHROMYCIN
     Dosage: UNK
     Route: 065
     Dates: start: 20210217, end: 20210222
  2. ACIDE FOLIQUE [Suspect]
     Active Substance: FOLIC ACID
     Indication: RHEUMATOID ARTHRITIS
     Dosage: 5 MG, WEEKLY
     Route: 048
     Dates: start: 20210213, end: 20210222
  3. CORDARONE [Suspect]
     Active Substance: AMIODARONE HYDROCHLORIDE
     Indication: ATRIAL FIBRILLATION
     Dosage: 150 MG/3 ML
     Route: 042
     Dates: start: 20210214, end: 20210215
  4. NEFOPAM HCL [Suspect]
     Active Substance: NEFOPAM
     Indication: PAIN
     Dosage: UNK
     Route: 065
     Dates: start: 20210208, end: 20210222
  5. LACTEOL [LACTOBACILLUS ACIDOPHILUS] [Suspect]
     Active Substance: LACTOBACILLUS ACIDOPHILUS
     Dosage: UNK
     Route: 048
     Dates: start: 20210208, end: 20210222
  6. NORADRENALINE [NOREPINEPHRINE] [Concomitant]
     Active Substance: NOREPINEPHRINE
     Dosage: UNK
     Route: 042
     Dates: start: 20210208
  7. METHOTREXATE SODIUM. [Suspect]
     Active Substance: METHOTREXATE SODIUM
     Indication: RHEUMATOID ARTHRITIS
     Dosage: 7.5 MG, WEEKLY (SATURDAY)
     Route: 048
     Dates: start: 20210220, end: 20210220
  8. IOMERON [Suspect]
     Active Substance: IOMEPROL
     Dosage: UNK
     Route: 042
     Dates: start: 20210210, end: 20210210
  9. KARDEGIC [Suspect]
     Active Substance: ASPIRIN DL-LYSINE
     Indication: PERIPHERAL ISCHAEMIA
     Dosage: UNK
     Route: 048
     Dates: start: 20210208, end: 20210222
  10. CORTANCYL [Suspect]
     Active Substance: PREDNISONE
     Indication: RHEUMATOID ARTHRITIS
     Dosage: 10 MG, 1X/DAY
     Route: 048
     Dates: start: 20210217, end: 20210222
  11. XENETIX [Suspect]
     Active Substance: IOBITRIDOL
     Indication: COMPUTERISED TOMOGRAM
     Dosage: UNK
     Route: 042
     Dates: start: 20210208, end: 20210208

REACTIONS (1)
  - Stevens-Johnson syndrome [Fatal]

NARRATIVE: CASE EVENT DATE: 20210222
